FAERS Safety Report 9006400 (Version 1)
Quarter: 2013Q1

REPORT INFORMATION
  Report Type: Spontaneous
  Country: US (occurrence: US)
  Receive Date: 20130110
  Receipt Date: 20130110
  Transmission Date: 20140127
  Serious: Yes (Other)
  Sender: FDA-Public Use
  Company Number: US-009507513-1012USA00489

PATIENT
  Age: 6 Year
  Sex: Male
  Weight: 21.4 kg

DRUGS (14)
  1. SINGULAIR [Suspect]
     Indication: ASTHMA
     Dosage: 4 MG, QD
     Route: 048
     Dates: start: 20061220, end: 20090620
  2. SINGULAIR [Suspect]
     Indication: RHINITIS ALLERGIC
     Dosage: 5 MG, QD
     Route: 048
     Dates: start: 20091105, end: 20091230
  3. PULMICORT [Concomitant]
     Dosage: 0.25 ?G, BID
     Route: 055
  4. PULMICORT [Concomitant]
     Dosage: 180 ?G, BID
     Route: 055
  5. XOPENEX [Concomitant]
     Dosage: Q4H AS NEEDED
     Route: 055
  6. TAVIST [Concomitant]
     Indication: HYPERSENSITIVITY
     Dosage: 5 ML, PRN
  7. SODIUM CHLORIDE [Concomitant]
     Dosage: 6 SQUIRTS EACH NOSTRIL
  8. FORADIL [Concomitant]
     Dosage: 12 ?G, PRN
     Route: 055
  9. ALBUTEROL [Concomitant]
     Dosage: 2.5 MG, PRN
  10. MK-9350 [Concomitant]
     Dosage: 15 MG, PRN
  11. MK-9350 [Concomitant]
     Dosage: 45 MG, PRN
  12. GRISEOFULVIN [Concomitant]
     Indication: BODY TINEA
     Dosage: 15 ML, QD
  13. NIVEA CREME [Concomitant]
     Dosage: 1 TO 2 TIMES DAILY
  14. PREDNISOLONE [Concomitant]
     Dosage: UNK

REACTIONS (8)
  - Violence-related symptom [Recovered/Resolved]
  - Aggression [Recovered/Resolved]
  - Speech disorder [Recovered/Resolved]
  - Violence-related symptom [Recovered/Resolved]
  - Morbid thoughts [Recovered/Resolved]
  - Morbid thoughts [Recovered/Resolved]
  - Speech disorder [Recovered/Resolved]
  - Aggression [Recovered/Resolved]
